FAERS Safety Report 4597898-3 (Version None)
Quarter: 2005Q1

REPORT INFORMATION
  Report Type: 
  Country: None (occurrence: None)
  Receive Date: 20050125
  Receipt Date: 20040921
  Transmission Date: 20050727
  Serious: No
  Sender: FDA-Public Use
  Company Number: USA040978085

PATIENT
  Age: 86 Year
  Sex: Female
  Weight: 61 kg

DRUGS (5)
  1. FORTEO [Suspect]
     Indication: OSTEOPOROSIS
     Dosage: 20 UG/1 DAY
     Dates: start: 20040802, end: 20040918
  2. MAGNESIUM (MAGNESIUM ASPARTATE) [Concomitant]
  3. MULTIVITAMIN [Concomitant]
  4. CALCIUM GLUCONATE [Concomitant]
  5. ATENOLOL [Concomitant]

REACTIONS (4)
  - ATRIAL FIBRILLATION [None]
  - HEART RATE INCREASED [None]
  - NAUSEA [None]
  - PAIN [None]
